FAERS Safety Report 8552015 (Version 2)
Quarter: 2012Q4

REPORT INFORMATION
  Report Type: 
  Country: US (occurrence: US)
  Receive Date: 20120508
  Receipt Date: 20120831
  Transmission Date: 20130627
  Serious: Yes (Life-Threatening, Hospitalization, Other)
  Sender: FDA-Public Use
  Company Number: US-BAYER-2012-043699

PATIENT
  Age: 51 Year
  Sex: Female
  Weight: 68 kg

DRUGS (20)
  1. YAZ [Suspect]
     Indication: ABDOMINAL PAIN
     Dosage: UNK
     Dates: start: 20071029, end: 20111226
  2. YAZ [Suspect]
     Indication: MENSTRUATION IRREGULAR
  3. YASMIN [Suspect]
     Indication: MENSTRUATION IRREGULAR
     Dosage: UNK
     Dates: start: 20070627, end: 20071003
  4. YASMIN [Suspect]
     Indication: ABDOMINAL PAIN
  5. AMBIEN [Concomitant]
     Indication: SLEEP DISORDER THERAPY
  6. AMBIEN [Concomitant]
     Indication: SLEEP DISORDER THERAPY
  7. EFFEXOR [Concomitant]
     Indication: DEPRESSION
     Dosage: 75 mg, once daily
     Route: 048
     Dates: start: 20111223
  8. DEMEROL [Concomitant]
     Indication: PAIN
     Dosage: 50 mg, 1 tab, every 4 hours as needed
     Route: 048
     Dates: start: 20111223
  9. PHENERGAN [Concomitant]
     Indication: MULTIPLE ALLERGIES
     Dosage: 25 mg,1 tab, every 4 hours as needed. Take with Demerol tablet may take at any time
     Route: 048
     Dates: start: 20111223
  10. PHENERGAN [Concomitant]
     Indication: NAUSEA
  11. PHENERGAN [Concomitant]
     Indication: VOMITING
  12. VENLAFAXINE HYDROCHLORIDE [Concomitant]
     Indication: DEPRESSION
     Dosage: 150 mg, daily
     Dates: start: 20100830
  13. VENLAFAXINE HYDROCHLORIDE [Concomitant]
     Indication: DEPRESSION
     Dosage: UNK
     Dates: start: 20111011
  14. VENLAFAXINE HYDROCHLORIDE [Concomitant]
     Indication: DEPRESSION
     Dosage: UNK
     Dates: start: 20111111
  15. VENLAFAXINE HYDROCHLORIDE [Concomitant]
     Indication: DEPRESSION
     Dosage: UNK
     Dates: start: 20111212
  16. AMITRIPTYLINE [Concomitant]
     Indication: TENSION
     Dosage: 25 mg, daily
     Dates: start: 20110802
  17. AMITRIPTYLINE [Concomitant]
     Indication: TENSION
     Dosage: UNK
     Dates: start: 20111011
  18. AMITRIPTYLINE [Concomitant]
     Indication: TENSION
     Dosage: UNK
     Dates: start: 20111111
  19. TIZANIDINE [Concomitant]
     Indication: MUSCLE RELAXANT THERAPY
     Dosage: UNK
     Dates: start: 20090611
  20. SULFAMETHOXAZOLE/TRIMETHOPRIM [Concomitant]
     Dosage: UNK
     Dates: start: 20090126

REACTIONS (7)
  - Pulmonary embolism [None]
  - Deep vein thrombosis [None]
  - Injury [None]
  - Pain [None]
  - Emotional distress [None]
  - Dyspnoea [None]
  - Pain [None]
